FAERS Safety Report 7716737-2 (Version None)
Quarter: 2011Q3

REPORT INFORMATION
  Report Type: 
  Country: None (occurrence: None)
  Receive Date: 20110829
  Receipt Date: 20110826
  Transmission Date: 20111222
  Serious: Yes (Hospitalization)
  Sender: FDA-Public Use
  Company Number: GB-ABBOTT-11P-167-0849522-00

PATIENT
  Age: 25 Year
  Sex: Male
  Weight: 59.3 kg

DRUGS (2)
  1. PREDNISOLONE [Concomitant]
     Indication: CROHN'S DISEASE
     Dosage: REDUCING DOSE
     Route: 048
     Dates: start: 20110501, end: 20110801
  2. HUMIRA [Suspect]
     Indication: CROHN'S DISEASE
     Route: 058
     Dates: start: 20110501, end: 20110810

REACTIONS (2)
  - FREQUENT BOWEL MOVEMENTS [None]
  - RASH [None]
